FAERS Safety Report 4979087-3 (Version None)
Quarter: 2006Q2

REPORT INFORMATION
  Report Type: 
  Country: None (occurrence: None)
  Receive Date: 20060420
  Receipt Date: 20060420
  Transmission Date: 20061013
  Serious: No
  Sender: FDA-Public Use
  Company Number: None

PATIENT

DRUGS (2)
  1. TYLENOL (CAPLET) [Suspect]
     Dosage: TABLET
  2. TYLENOL (CAPLET) [Suspect]
     Dosage: TABLET

REACTIONS (1)
  - MEDICATION ERROR [None]
